FAERS Safety Report 9194047 (Version 1)
Quarter: 2013Q1

REPORT INFORMATION
  Report Type: Report from Study
  Country: TR (occurrence: TR)
  Receive Date: 20130327
  Receipt Date: 20130327
  Transmission Date: 20140127
  Serious: Yes (Hospitalization)
  Sender: FDA-Public Use
  Company Number: TR-BAXTER-2013BAX010402

PATIENT
  Age: 8 Year
  Sex: Male
  Weight: 22 kg

DRUGS (1)
  1. FEIBA [Suspect]
     Indication: FACTOR VIII DEFICIENCY
     Route: 042
     Dates: start: 20130308

REACTIONS (7)
  - Dyspnoea [Recovered/Resolved]
  - Generalised erythema [Recovered/Resolved]
  - Pruritus [Recovered/Resolved]
  - Swollen tongue [Recovered/Resolved]
  - Oedema mouth [Recovered/Resolved]
  - Eye swelling [Recovered/Resolved]
  - Swelling [Recovered/Resolved]
